FAERS Safety Report 14909750 (Version 1)
Quarter: 2018Q2

REPORT INFORMATION
  Report Type: Report from Study
  Country: None (occurrence: IL)
  Receive Date: 20180517
  Receipt Date: 20180517
  Transmission Date: 20180711
  Serious: Yes (Hospitalization)
  Sender: FDA-Public Use
  Company Number: IL-ABBVIE-17P-082-1900009-00

PATIENT
  Age: 68 Year
  Sex: Male

DRUGS (1)
  1. DUODOPA [Suspect]
     Active Substance: CARBIDOPA\LEVODOPA
     Indication: PARKINSON^S DISEASE
     Dosage: CMD- 9 ML, CURRENT FIXED RATE- 3.7 ML/HOUR
     Route: 050
     Dates: start: 20160507

REACTIONS (7)
  - Memory impairment [Recovering/Resolving]
  - Dysstasia [Not Recovered/Not Resolved]
  - Urinary tract infection [Recovering/Resolving]
  - Disorganised speech [Not Recovered/Not Resolved]
  - Malaise [Not Recovered/Not Resolved]
  - Confusional state [Not Recovered/Not Resolved]
  - Renal impairment [Recovering/Resolving]

NARRATIVE: CASE EVENT DATE: 201805
